FAERS Safety Report 9651024 (Version 2)
Quarter: 2013Q4

REPORT INFORMATION
  Report Type: Report from Study
  Country: MX (occurrence: MX)
  Receive Date: 20131029
  Receipt Date: 20131104
  Transmission Date: 20140711
  Serious: No
  Sender: FDA-Public Use
  Company Number: PHHY2013MX121056

PATIENT
  Age: 78 Year
  Sex: Male

DRUGS (2)
  1. ACLASTA [Suspect]
     Indication: OSTEOPOROSIS
     Dosage: 5 MG/100ML ANNUAL
     Route: 042
     Dates: start: 201209
  2. ACLASTA [Suspect]
     Dosage: 5 MG/100ML ANNUAL
     Route: 042
     Dates: start: 201309

REACTIONS (2)
  - Bone density abnormal [Not Recovered/Not Resolved]
  - Drug ineffective [Not Recovered/Not Resolved]
